FAERS Safety Report 9150576 (Version 1)
Quarter: 2013Q1

REPORT INFORMATION
  Report Type: Spontaneous
  Country: US (occurrence: US)
  Receive Date: 20130308
  Receipt Date: 20130308
  Transmission Date: 20140127
  Serious: No
  Sender: FDA-Public Use
  Company Number: US-ENDO PHARMACEUTICALS INC.-OPCR20121178

PATIENT
  Sex: Female
  Weight: 81.72 kg

DRUGS (12)
  1. OPANA ER 20MG [Suspect]
     Indication: SPINAL COLUMN STENOSIS
     Route: 048
     Dates: start: 201204
  2. OPANA ER 20MG [Suspect]
     Indication: INTERVERTEBRAL DISC PROTRUSION
  3. OPANA ER 20MG [Suspect]
     Indication: INTERVERTEBRAL DISC PROTRUSION
  4. OPANA ER 20MG [Suspect]
     Indication: OSTEOARTHRITIS
  5. OPANA ER 20MG [Suspect]
     Indication: BRAIN NEOPLASM
  6. OPANA ER 20MG [Suspect]
     Indication: PORPHYRIA
  7. OPANA ER [Concomitant]
     Indication: SPINAL COLUMN STENOSIS
     Dosage: UNKNOWN
     Route: 048
     Dates: end: 201204
  8. OPANA ER [Concomitant]
     Indication: INTERVERTEBRAL DISC PROTRUSION
  9. OPANA ER [Concomitant]
     Indication: INTERVERTEBRAL DISC PROTRUSION
  10. OPANA ER [Concomitant]
     Indication: OSTEOARTHRITIS
  11. OPANA ER [Concomitant]
     Indication: BRAIN NEOPLASM
  12. OPANA ER [Concomitant]
     Indication: PORPHYRIA

REACTIONS (2)
  - Medication residue present [Unknown]
  - Drug ineffective [Not Recovered/Not Resolved]
